FAERS Safety Report 15885940 (Version 1)
Quarter: 2019Q1

REPORT INFORMATION
  Report Type: Report from Study
  Country: CA (occurrence: CA)
  Receive Date: 20190129
  Receipt Date: 20190129
  Transmission Date: 20190417
  Serious: Yes (Other)
  Sender: FDA-Public Use
  Company Number: CA-HLSUS-2019-CA-000079

PATIENT
  Sex: Male

DRUGS (1)
  1. CLOZARIL [Suspect]
     Active Substance: CLOZAPINE
     Route: 048
     Dates: start: 20130604

REACTIONS (12)
  - Obesity [Unknown]
  - Adverse drug reaction [Unknown]
  - Affective disorder [Unknown]
  - Erectile dysfunction [Unknown]
  - Depression [Unknown]
  - Bipolar disorder [Unknown]
  - Intertrigo [Unknown]
  - Weight increased [Unknown]
  - Major depression [Unknown]
  - Schizoaffective disorder depressive type [Unknown]
  - Bronchitis [Unknown]
  - Psychotic disorder [Unknown]
